FAERS Safety Report 21520897 (Version 1)
Quarter: 2022Q4

REPORT INFORMATION
  Report Type: Spontaneous
  Country: US (occurrence: None)
  Receive Date: 20221028
  Receipt Date: 20221028
  Transmission Date: 20230113
  Serious: No
  Sender: FDA-Public Use
  Company Number: US-Merck Healthcare KGaA-9361279

PATIENT
  Sex: Female

DRUGS (5)
  1. EUTHYROX [Suspect]
     Active Substance: LEVOTHYROXINE SODIUM
     Indication: Thyroid disorder
     Route: 048
  2. NORVASC [Concomitant]
     Active Substance: AMLODIPINE BESYLATE
     Indication: Blood pressure measurement
  3. LISINOPRIL [Concomitant]
     Active Substance: LISINOPRIL
     Indication: Blood pressure measurement
  4. CEFIXIME [Concomitant]
     Active Substance: CEFIXIME
     Indication: Product used for unknown indication
  5. PROLIA [Concomitant]
     Active Substance: DENOSUMAB
     Indication: Bone disorder

REACTIONS (3)
  - Alopecia [Not Recovered/Not Resolved]
  - Onychoclasis [Recovering/Resolving]
  - Multiple allergies [Not Recovered/Not Resolved]
